APPROVED DRUG PRODUCT: ALBUTEROL SULFATE
Active Ingredient: ALBUTEROL SULFATE
Strength: EQ 0.083% BASE
Dosage Form/Route: SOLUTION;INHALATION
Application: A075717 | Product #001
Applicant: APOTEX INC
Approved: Feb 2, 2007 | RLD: No | RS: No | Type: DISCN